FAERS Safety Report 19120600 (Version 1)
Quarter: 2021Q2

REPORT INFORMATION
  Report Type: Spontaneous
  Country: US (occurrence: US)
  Receive Date: 20210409
  Receipt Date: 20210409
  Transmission Date: 20210717
  Serious: Yes (Other)
  Sender: FDA-Public Use
  Company Number: None

PATIENT
  Age: 43 Year
  Sex: Female
  Weight: 112.5 kg

DRUGS (8)
  1. AMLODIPINE [Concomitant]
     Active Substance: AMLODIPINE BESYLATE
  2. ATORVASTATIN [Concomitant]
     Active Substance: ATORVASTATIN
  3. CANDESARTAN. [Concomitant]
     Active Substance: CANDESARTAN
  4. CHLORHEXIDINE 0.12% RINSE MOUTHWASH [Suspect]
     Active Substance: CHLORHEXIDINE
     Indication: TOOTH EXTRACTION
     Dosage: ?          QUANTITY:1 ML;?
     Route: 048
     Dates: start: 20210326, end: 20210404
  5. JARDIANCE [Concomitant]
     Active Substance: EMPAGLIFLOZIN
  6. FERROUS SULFATE. [Concomitant]
     Active Substance: FERROUS SULFATE
  7. JANUMET [Concomitant]
     Active Substance: METFORMIN HYDROCHLORIDE\SITAGLIPTIN PHOSPHATE
  8. MELOXICAM. [Concomitant]
     Active Substance: MELOXICAM

REACTIONS (2)
  - Hypersensitivity [None]
  - Contusion [None]

NARRATIVE: CASE EVENT DATE: 20210329
